FAERS Safety Report 9042462 (Version 1)
Quarter: 2013Q1

REPORT INFORMATION
  Report Type: Report from Study
  Country: US (occurrence: US)
  Receive Date: 20130129
  Receipt Date: 20130129
  Transmission Date: 20140127
  Serious: No
  Sender: FDA-Public Use
  Company Number: US-ABBOTT-12P-163-0908105-00

PATIENT
  Age: 35 Year
  Sex: Male

DRUGS (4)
  1. HUMIRA 40 MG/0.8 ML PEN [Suspect]
     Indication: CROHN^S DISEASE
     Dosage: LOADING DOSE
  2. PREDNISONE [Concomitant]
     Indication: PRODUCT USED FOR UNKNOWN INDICATION
  3. ASACOL [Concomitant]
     Indication: CROHN^S DISEASE
  4. LISINOPRIL [Concomitant]
     Indication: BLOOD PRESSURE

REACTIONS (8)
  - Limb discomfort [Recovering/Resolving]
  - Paraesthesia [Recovered/Resolved]
  - Local swelling [Recovered/Resolved]
  - Local swelling [Recovered/Resolved]
  - Tendon pain [Not Recovered/Not Resolved]
  - Grip strength decreased [Recovered/Resolved]
  - Hypertension [Not Recovered/Not Resolved]
  - Oropharyngeal pain [Recovered/Resolved]
